FAERS Safety Report 9705989 (Version 1)
Quarter: 2013Q4

REPORT INFORMATION
  Report Type: Spontaneous
  Country: FR (occurrence: FR)
  Receive Date: 20131122
  Receipt Date: 20131122
  Transmission Date: 20140711
  Serious: Yes (Death)
  Sender: FDA-Public Use
  Company Number: FR-B.I. PHARMACEUTICALS,INC./RIDGEFIELD-2013-FF-02738FF

PATIENT
  Age: 72 Year
  Sex: Female

DRUGS (3)
  1. PRADAXA [Suspect]
     Route: 048
     Dates: end: 20131109
  2. CORDARONE [Concomitant]
  3. TAHOR [Concomitant]

REACTIONS (1)
  - Haemorrhage intracranial [Fatal]
